FAERS Safety Report 15290574 (Version 1)
Quarter: 2018Q3

REPORT INFORMATION
  Report Type: Spontaneous
  Country: US (occurrence: US)
  Receive Date: 20180817
  Receipt Date: 20180817
  Transmission Date: 20181010
  Serious: Yes (Other)
  Sender: FDA-Public Use
  Company Number: US-PFIZER INC-2018330386

PATIENT
  Age: 56 Year
  Sex: Female
  Weight: 33 kg

DRUGS (4)
  1. XELJANZ XR [Suspect]
     Active Substance: TOFACITINIB CITRATE
     Indication: RHEUMATOID ARTHRITIS
     Dosage: 1 DF, 1X/DAY
  2. PROTONIX [Concomitant]
     Active Substance: PANTOPRAZOLE SODIUM
     Indication: HYPERCHLORHYDRIA
     Dosage: 40 MG, 2X/DAY
     Route: 048
  3. PROTONIX [Concomitant]
     Active Substance: PANTOPRAZOLE SODIUM
     Indication: GASTROOESOPHAGEAL REFLUX DISEASE
  4. MORPHINE [Concomitant]
     Active Substance: MORPHINE
     Indication: PAIN
     Dosage: 60 MG, 2X/DAY
     Route: 048

REACTIONS (6)
  - Dizziness [Recovering/Resolving]
  - Asthenia [Recovering/Resolving]
  - Spinal fracture [Unknown]
  - Malaise [Recovering/Resolving]
  - Gait disturbance [Unknown]
  - Sinus disorder [Recovering/Resolving]

NARRATIVE: CASE EVENT DATE: 201806
